FAERS Safety Report 12584945 (Version 1)
Quarter: 2016Q3

REPORT INFORMATION
  Report Type: Report from Study
  Country: US (occurrence: US)
  Receive Date: 20160722
  Receipt Date: 20160722
  Transmission Date: 20161109
  Serious: No
  Sender: FDA-Public Use
  Company Number: US-AMGEN-USASL2016071223

PATIENT
  Age: 71 Year
  Sex: Male

DRUGS (3)
  1. REPATHA [Suspect]
     Active Substance: EVOLOCUMAB
     Indication: LOW DENSITY LIPOPROTEIN INCREASED
     Dosage: 140 MG/1.0ML, UNK
     Route: 065
     Dates: start: 20160317
  2. CRESTOR [Concomitant]
     Active Substance: ROSUVASTATIN CALCIUM
     Route: 065
  3. PRALUENT [Concomitant]
     Active Substance: ALIROCUMAB

REACTIONS (12)
  - Weight decreased [Unknown]
  - Wrong technique in product usage process [Unknown]
  - Feeling hot [Unknown]
  - Myalgia [Unknown]
  - Pain [Unknown]
  - Pain in extremity [Unknown]
  - Intentional underdose [Unknown]
  - Accidental exposure to product [Unknown]
  - Renal pain [Unknown]
  - Arthritis [Unknown]
  - Back pain [Unknown]
  - Underdose [Unknown]
